FAERS Safety Report 7444725-2 (Version None)
Quarter: 2011Q2

REPORT INFORMATION
  Report Type: 
  Country: None (occurrence: None)
  Receive Date: 20110429
  Receipt Date: 20100330
  Transmission Date: 20111010
  Serious: No
  Sender: FDA-Public Use
  Company Number: US-PFIZER INC-US-WYE-H14396110

PATIENT
  Age: 40 Year
  Sex: Female
  Weight: 131.1 kg

DRUGS (5)
  1. ADVIL ALLERGY SINUS [Suspect]
     Indication: EYE PRURITUS
     Dosage: 1 DF, 1X/DAY
     Route: 048
     Dates: start: 20100326, end: 20100326
  2. ADVIL ALLERGY SINUS [Suspect]
     Indication: LACRIMATION INCREASED
  3. ADVIL ALLERGY SINUS [Suspect]
     Indication: NASAL CONGESTION
  4. ADVIL ALLERGY SINUS [Suspect]
     Indication: THROAT IRRITATION
  5. ADVIL ALLERGY SINUS [Suspect]
     Indication: SNEEZING

REACTIONS (2)
  - DRUG INEFFECTIVE [None]
  - URTICARIA [None]
